FAERS Safety Report 6603540-X (Version None)
Quarter: 2010Q1

REPORT INFORMATION
  Report Type: 
  Country: None (occurrence: None)
  Receive Date: 20100226
  Receipt Date: 20090918
  Transmission Date: 20100710
  Serious: No
  Sender: FDA-Public Use
  Company Number: A0808064A

PATIENT
  Age: 80 Year
  Sex: Female

DRUGS (6)
  1. VALTREX [Suspect]
     Dosage: 1G THREE TIMES PER DAY
     Route: 048
     Dates: start: 20090910
  2. CARDIZEM [Concomitant]
  3. MAXAIR [Concomitant]
  4. AZMACORT [Concomitant]
  5. ASTELIN [Concomitant]
  6. RHINOCORT [Concomitant]

REACTIONS (3)
  - DRUG INEFFECTIVE [None]
  - GROIN PAIN [None]
  - MUSCLE SPASMS [None]
